FAERS Safety Report 8395133-1 (Version None)
Quarter: 2012Q2

REPORT INFORMATION
  Report Type: 
  Country: None (occurrence: None)
  Receive Date: 20120530
  Receipt Date: 20120522
  Transmission Date: 20120825
  Serious: Yes (Other)
  Sender: FDA-Public Use
  Company Number: CA-JNJFOC-20120517517

PATIENT
  Sex: Male
  Weight: 99.9 kg

DRUGS (5)
  1. TIAPROFENIC ACID [Concomitant]
     Route: 065
  2. IMURAN [Concomitant]
     Route: 065
  3. IBUPROFEN (ADVIL) [Concomitant]
     Route: 065
  4. RABEPRAZOLE SODIUM [Concomitant]
     Route: 065
  5. REMICADE [Suspect]
     Indication: ANKYLOSING SPONDYLITIS
     Route: 042
     Dates: start: 20090617

REACTIONS (3)
  - PHYSICAL ASSAULT [None]
  - INFLUENZA [None]
  - CONCUSSION [None]
